FAERS Safety Report 25100540 (Version 2)
Quarter: 2025Q2

REPORT INFORMATION
  Report Type: Spontaneous
  Country: US (occurrence: US)
  Receive Date: 20250320
  Receipt Date: 20250403
  Transmission Date: 20250717
  Serious: Yes (Other)
  Sender: TEVA
  Company Number: US-TEVA-VS-3309071

PATIENT
  Age: 29 Year
  Sex: Female

DRUGS (3)
  1. TRIHEXYPHENIDYL [Suspect]
     Active Substance: TRIHEXYPHENIDYL
     Indication: Gait disturbance
     Route: 065
  2. LEVODOPA [Suspect]
     Active Substance: LEVODOPA
     Indication: Gait disturbance
     Route: 065
  3. PRAMIPEXOLE [Suspect]
     Active Substance: PRAMIPEXOLE
     Indication: Gait disturbance
     Route: 065

REACTIONS (4)
  - Muscle twitching [Unknown]
  - Dyskinesia [Unknown]
  - Dyskinesia [Unknown]
  - Drug ineffective [Unknown]
